FAERS Safety Report 9693159 (Version 1)
Quarter: 2013Q4

REPORT INFORMATION
  Report Type: Spontaneous
  Country: CA (occurrence: None)
  Receive Date: 20131114
  Receipt Date: 20131114
  Transmission Date: 20140711
  Serious: Yes (Hospitalization)
  Sender: FDA-Public Use
  Company Number: DSU-2013-05063

PATIENT
  Age: 95 Year
  Sex: Female

DRUGS (1)
  1. OLMETEC [Suspect]
     Indication: PRODUCT USED FOR UNKNOWN INDICATION
     Dosage: 20MG (20MG) PER ORAL
     Route: 048

REACTIONS (1)
  - Hyponatraemia [None]
